FAERS Safety Report 5261379-4 (Version None)
Quarter: 2007Q1

REPORT INFORMATION
  Report Type: 
  Country: None (occurrence: None)
  Receive Date: 20070307
  Receipt Date: 20070227
  Transmission Date: 20070707
  Serious: Yes (Disabling)
  Sender: FDA-Public Use
  Company Number: 163-21880-07020223

PATIENT
  Age: 48 Year
  Sex: Male

DRUGS (4)
  1. REVLIMID [Suspect]
     Indication: MYELODYSPLASTIC SYNDROME
     Dosage: 10 MG, 1 IN 1 D, ORAL
     Route: 048
     Dates: start: 20060831, end: 20070110
  2. ARANESP [Concomitant]
  3. HYDROCHLOROTHIAZIDE [Concomitant]
  4. ASCORBIC ACID [Concomitant]

REACTIONS (3)
  - LYMPHADENOPATHY [None]
  - PANCYTOPENIA [None]
  - SPLENOMEGALY [None]
